FAERS Safety Report 10178841 (Version 4)
Quarter: 2014Q3

REPORT INFORMATION
  Report Type: Spontaneous
  Country: JP (occurrence: JP)
  Receive Date: 20140519
  Receipt Date: 20140707
  Transmission Date: 20150326
  Serious: Yes (Hospitalization, Other)
  Sender: FDA-Public Use
  Company Number: JP-ELI_LILLY_AND_COMPANY-JP201402006011

PATIENT
  Age: 76 Year
  Sex: Female
  Weight: 37 kg

DRUGS (6)
  1. FORTEO [Suspect]
     Active Substance: TERIPARATIDE
     Indication: OSTEOPOROSIS
     Dosage: UNK
     Route: 058
     Dates: start: 20121225, end: 20140505
  2. LANIRAPID [Suspect]
     Active Substance: METILDIGOXIN
     Indication: TACHYCARDIA PAROXYSMAL
     Dosage: UNK
     Route: 048
     Dates: start: 20140212, end: 20140505
  3. AMLODIPINE                         /00972402/ [Concomitant]
     Active Substance: AMLODIPINE BESYLATE
     Indication: HYPERTENSION
     Dosage: UNK
     Route: 048
  4. VASOLAN                            /00014302/ [Suspect]
     Active Substance: VERAPAMIL HYDROCHLORIDE
     Indication: ATRIAL FIBRILLATION
     Dosage: 40 MG, TID
     Route: 048
     Dates: start: 20140212, end: 20140505
  5. ROHYPNOL [Concomitant]
     Active Substance: FLUNITRAZEPAM
     Indication: INSOMNIA
     Dosage: UNK
     Route: 048
     Dates: start: 20140305
  6. PRONON [Suspect]
     Active Substance: PROPAFENONE
     Indication: TACHYCARDIA PAROXYSMAL
     Dosage: 150 MG, TID
     Route: 048
     Dates: start: 20140212, end: 20140505

REACTIONS (7)
  - Toxicity to various agents [Recovering/Resolving]
  - Cardiac failure [Not Recovered/Not Resolved]
  - Faeces discoloured [Unknown]
  - Tachycardia paroxysmal [Not Recovered/Not Resolved]
  - Sinus arrest [Recovering/Resolving]
  - Atrial fibrillation [Not Recovered/Not Resolved]
  - Cardiac valve disease [Unknown]

NARRATIVE: CASE EVENT DATE: 20140210
